FAERS Safety Report 11860279 (Version 3)
Quarter: 2016Q1

REPORT INFORMATION
  Report Type: Spontaneous
  Country: JP (occurrence: JP)
  Receive Date: 20151222
  Receipt Date: 20160113
  Transmission Date: 20160526
  Serious: Yes (Death, Other)
  Sender: FDA-Public Use
  Company Number: JP-TAKEDA-2015MPI008580

PATIENT

DRUGS (3)
  1. VELCADE [Suspect]
     Active Substance: BORTEZOMIB
     Indication: PLASMA CELL MYELOMA
     Dosage: 1 MG/M2, QD
     Route: 058
     Dates: start: 20151117, end: 2015
  2. ALKERAN [Concomitant]
     Active Substance: MELPHALAN
     Indication: PLASMA CELL MYELOMA
     Dosage: 6 MG, QD
     Route: 048
     Dates: start: 20151117, end: 20151130
  3. PREDONINE [Concomitant]
     Active Substance: PREDNISOLONE\PREDNISOLONE ACETATE\PREDNISOLONE SODIUM SUCCINATE
     Indication: PLASMA CELL MYELOMA
     Dosage: 50 MG, QD
     Route: 048
     Dates: start: 20151117, end: 20151130

REACTIONS (1)
  - Plasma cell myeloma [Fatal]
